FAERS Safety Report 10186374 (Version 1)
Quarter: 2014Q2

REPORT INFORMATION
  Report Type: Spontaneous
  Country: US (occurrence: US)
  Receive Date: 20140521
  Receipt Date: 20140521
  Transmission Date: 20141212
  Serious: No
  Sender: FDA-Public Use
  Company Number: US-ASTRAZENECA-2013SE86340

PATIENT
  Age: 78 Year
  Sex: Male
  Weight: 86.2 kg

DRUGS (2)
  1. PULMICORT FLEXHALER [Suspect]
     Indication: LUNG INFECTION
     Dosage: ONE PUFF BID
     Route: 055
     Dates: start: 20131120
  2. AZITHROMYCIN [Concomitant]
     Indication: INFECTION
     Dosage: 250 MG
     Route: 048
     Dates: start: 20131118

REACTIONS (4)
  - Malaise [Not Recovered/Not Resolved]
  - Intentional product misuse [Unknown]
  - Off label use [Unknown]
  - Headache [Not Recovered/Not Resolved]
